FAERS Safety Report 15981235 (Version 1)
Quarter: 2019Q1

REPORT INFORMATION
  Report Type: Spontaneous
  Country: US (occurrence: US)
  Receive Date: 20190218
  Receipt Date: 20190218
  Transmission Date: 20190418
  Serious: Yes (Death)
  Sender: FDA-Public Use
  Company Number: None

PATIENT
  Age: 75 Year
  Sex: Male

DRUGS (14)
  1. ALECENSA [Suspect]
     Active Substance: ALECTINIB HYDROCHLORIDE
     Route: 048
  2. LAMICTAL [Concomitant]
     Active Substance: LAMOTRIGINE
  3. GLIPIZIDE 2.5MG [Concomitant]
  4. AMLODIPINE [Concomitant]
     Active Substance: AMLODIPINE BESYLATE
  5. ASP 81 [Concomitant]
  6. HCTZ 25MG [Concomitant]
  7. TERAZOSIN HCL [Concomitant]
     Active Substance: TERAZOSIN HYDROCHLORIDE
  8. ATORVASTATIN 20MG [Concomitant]
     Active Substance: ATORVASTATIN
  9. SPIRONOLACTON 50MCG [Concomitant]
  10. LASIX 20MG [Concomitant]
  11. DEPAKOTE 500MG [Concomitant]
  12. LABETALOL 2.5MG [Concomitant]
  13. METFORMIN 500MG [Concomitant]
     Active Substance: METFORMIN HYDROCHLORIDE
  14. VITAMIN B12 50 MCG [Concomitant]

REACTIONS (1)
  - Death [None]

NARRATIVE: CASE EVENT DATE: 20190218
